FAERS Safety Report 4669268-0 (Version None)
Quarter: 2005Q2

REPORT INFORMATION
  Report Type: 
  Country: None (occurrence: None)
  Receive Date: 20050519
  Receipt Date: 20050503
  Transmission Date: 20051028
  Serious: No
  Sender: FDA-Public Use
  Company Number: 2005-125695-NL

PATIENT
  Age: 37 Year
  Sex: Female

DRUGS (10)
  1. MIRTAZAPINE [Suspect]
     Dosage: 45 DF
     Route: 048
     Dates: start: 20050101
  2. CODEINE [Concomitant]
  3. PARACETAMOL [Concomitant]
  4. DICLOFENAC [Concomitant]
  5. BISACODYL [Concomitant]
  6. DIAZEPAM [Concomitant]
  7. VENLAFAXINE HCL [Suspect]
     Indication: DEPRESSION
     Dosage: 225 MG/DF
     Route: 048
     Dates: start: 20050101, end: 20050310
  8. VENLAFAXINE HCL [Suspect]
     Indication: DEPRESSION
     Dosage: 225 MG/DF
     Route: 048
     Dates: start: 20050222
  9. QUETIAPINE FUMARATE [Suspect]
     Indication: MAJOR DEPRESSION
     Dosage: 250 MG
     Route: 048
     Dates: start: 20050214
  10. QUETIAPINE FUMARATE [Suspect]
     Indication: PSYCHOTIC DISORDER
     Dosage: 250 MG
     Route: 048
     Dates: start: 20050214

REACTIONS (2)
  - MYDRIASIS [None]
  - VISUAL DISTURBANCE [None]
